FAERS Safety Report 23027918 (Version 1)
Quarter: 2023Q4

REPORT INFORMATION
  Report Type: Spontaneous
  Country: BR (occurrence: BR)
  Receive Date: 20231004
  Receipt Date: 20231004
  Transmission Date: 20240110
  Serious: Yes (Other)
  Sender: FDA-Public Use
  Company Number: BR-PFIZER INC-PV202300160734

PATIENT
  Age: 62 Year
  Sex: Female
  Weight: 41 kg

DRUGS (3)
  1. IBRANCE [Suspect]
     Active Substance: PALBOCICLIB
     Indication: Breast cancer metastatic
     Dosage: 1 DF, CYCLIC (FOR 21 DAYS AND 7-DAY BREAK)
     Dates: start: 2018, end: 2023
  2. FASLODEX [Concomitant]
     Active Substance: FULVESTRANT
     Indication: Neoplasm malignant
     Dosage: CYCLIC (EVERY 28 DAYS)
  3. RISEDRONATE SODIUM [Concomitant]
     Active Substance: RISEDRONATE SODIUM
     Indication: Osteoporosis
     Dosage: 1 DF, MONTHLY

REACTIONS (1)
  - Capsular contracture associated with breast implant [Unknown]

NARRATIVE: CASE EVENT DATE: 20230906
